FAERS Safety Report 17623514 (Version 1)
Quarter: 2020Q2

REPORT INFORMATION
  Report Type: Spontaneous
  Country: IT (occurrence: IT)
  Receive Date: 20200403
  Receipt Date: 20200403
  Transmission Date: 20200713
  Serious: Yes (Death, Hospitalization, Other)
  Sender: FDA-Public Use
  Company Number: IT-GLAXOSMITHKLINE-IT2020GSK055146

PATIENT
  Age: 39 Year
  Sex: Female

DRUGS (4)
  1. QUETIAPINE. [Suspect]
     Active Substance: QUETIAPINE
     Indication: BIPOLAR DISORDER
     Dosage: UNK
  2. LAMOTRIGINE. [Suspect]
     Active Substance: LAMOTRIGINE
     Indication: BIPOLAR DISORDER
     Dosage: 25 MG, BID
     Route: 048
  3. CLONAZEPAM. [Concomitant]
     Active Substance: CLONAZEPAM
     Indication: PRODUCT USED FOR UNKNOWN INDICATION
     Dosage: 1 MG, TID
     Route: 048
  4. PALIPERIDONE PALMITATE [Suspect]
     Active Substance: PALIPERIDONE PALMITATE
     Indication: BIPOLAR DISORDER
     Dosage: 100 MG, EVERY 4 WEEK, EXTENDED-RELEASE INJECTABLE SUSPENSION
     Route: 042

REACTIONS (18)
  - Brain oedema [Unknown]
  - Cardiac arrest [Recovered/Resolved]
  - Vomiting projectile [Unknown]
  - Hypothermia [Unknown]
  - Hypotension [Unknown]
  - Abnormal behaviour [Unknown]
  - Polydipsia [Unknown]
  - Loss of consciousness [Unknown]
  - Coma [Unknown]
  - Treatment noncompliance [Unknown]
  - Inappropriate antidiuretic hormone secretion [Fatal]
  - Brain herniation [Unknown]
  - Hyponatraemia [Fatal]
  - Seizure [Unknown]
  - Blood osmolarity decreased [Unknown]
  - Haemodynamic instability [Unknown]
  - Pulse absent [Unknown]
  - Electrocardiogram change [Unknown]
